FAERS Safety Report 8812705 (Version 4)
Quarter: 2013Q1

REPORT INFORMATION
  Report Type: Spontaneous
  Country: GB (occurrence: GB)
  Receive Date: 20120927
  Receipt Date: 20130111
  Transmission Date: 20140127
  Serious: Yes (Other)
  Sender: FDA-Public Use
  Company Number: GB-ELI_LILLY_AND_COMPANY-GB201207008420

PATIENT
  Age: 61 Year
  Sex: Female
  Weight: 106.8 kg

DRUGS (8)
  1. BYDUREON [Suspect]
     Indication: TYPE 2 DIABETES MELLITUS
     Dosage: 2 MG, WEEKLY (1/W)
     Route: 058
     Dates: start: 20120705
  2. BYETTA [Concomitant]
  3. CALCIUM CARBONATE W/COLECALCIFEROL [Concomitant]
     Dosage: 1 DF, BID
  4. DOSULEPIN [Concomitant]
     Dosage: 75 MG, EACH EVENING
  5. LOSARTAN [Concomitant]
     Dosage: 25 MG, QD
  6. METFORMIN [Concomitant]
     Dosage: 750 MG, QD
  7. OMEPRAZOLE [Concomitant]
     Dosage: 10 MG, QD
  8. SIMVASTATIN [Concomitant]
     Dosage: 20 MG, EACH EVENING

REACTIONS (1)
  - Erythema multiforme [Recovered/Resolved]
